FAERS Safety Report 4436639-7 (Version None)
Quarter: 2004Q3

REPORT INFORMATION
  Report Type: 
  Country: None (occurrence: None)
  Receive Date: 20040830
  Receipt Date: 20040722
  Transmission Date: 20050211
  Serious: No
  Sender: FDA-Public Use
  Company Number: US-BRISTOL-MYERS SQUIBB COMPANY-12648911

PATIENT
  Age: 56 Year
  Sex: Female
  Weight: 63 kg

DRUGS (2)
  1. ABILIFY [Suspect]
     Indication: BIPOLAR I DISORDER
     Dosage: INCR TO 10 MG, 22-JUL-04
     Route: 048
     Dates: start: 20040712
  2. NORVASC [Concomitant]

REACTIONS (3)
  - INSOMNIA [None]
  - SOMNOLENCE [None]
  - WEIGHT DECREASED [None]
